FAERS Safety Report 8924462 (Version 2)
Quarter: 2013Q1

REPORT INFORMATION
  Report Type: Spontaneous
  Country: GB (occurrence: GB)
  Receive Date: 20121126
  Receipt Date: 20130110
  Transmission Date: 20140127
  Serious: Yes (Disabling, Other)
  Sender: FDA-Public Use
  Company Number: PHHY2012GB105811

PATIENT
  Age: 70 Year
  Sex: Female
  Weight: 60 kg

DRUGS (3)
  1. ALENDRONIC ACID [Suspect]
     Indication: OSTEOPOROSIS
     Dosage: 70 MG
     Route: 048
  2. FLUCLOXACILLIN [Concomitant]
     Dosage: 500 MG, QD
  3. FLUCLOXACILLIN [Concomitant]
     Dosage: 500 MG, BID

REACTIONS (4)
  - Abasia [Unknown]
  - Pain [Unknown]
  - Osteonecrosis of jaw [Unknown]
  - Weight decreased [Unknown]
